FAERS Safety Report 7424253-0 (Version None)
Quarter: 2011Q2

REPORT INFORMATION
  Report Type: 
  Country: None (occurrence: None)
  Receive Date: 20110411
  Receipt Date: 20110325
  Transmission Date: 20111010
  Serious: Yes (Other)
  Sender: FDA-Public Use
  Company Number: 2011-00385

PATIENT
  Age: 95 Year
  Sex: Male

DRUGS (8)
  1. LISINOPRIL [Suspect]
     Indication: HYPERTENSION
     Dosage: 2.5 MG (2.5 MG,1 IN 1 D),ORAL ; 5 MG (5 MG, 1 IN 1 D),ORAL
     Route: 048
     Dates: start: 20060619
  2. LISINOPRIL [Suspect]
     Indication: HYPERTENSION
     Dosage: 2.5 MG (2.5 MG,1 IN 1 D),ORAL ; 5 MG (5 MG, 1 IN 1 D),ORAL
     Route: 048
     Dates: start: 20060522, end: 20060618
  3. OMEPRAZOLE [Concomitant]
  4. LYRICA [Suspect]
     Indication: PRODUCT USED FOR UNKNOWN INDICATION
     Dosage: 25 MG (25 MG,1 IN 1 D),ORAL ; 25 MG (25 MG,1 IN 1 D),ORAL
     Route: 048
     Dates: start: 20110219
  5. LYRICA [Suspect]
     Indication: PRODUCT USED FOR UNKNOWN INDICATION
     Dosage: 25 MG (25 MG,1 IN 1 D),ORAL ; 25 MG (25 MG,1 IN 1 D),ORAL
     Route: 048
     Dates: start: 20110201
  6. FENTANYL (UNKNOWN) [Concomitant]
  7. AMITRIPTYLINE HYDROCHLORIDE (UNKNOWN) [Concomitant]
  8. ACETAMINOPHEN [Concomitant]

REACTIONS (5)
  - HALLUCINATION [None]
  - DEPRESSION [None]
  - FALL [None]
  - DRUG DOSE OMISSION [None]
  - SYNCOPE [None]
